FAERS Safety Report 23255650 (Version 1)
Quarter: 2023Q4

REPORT INFORMATION
  Report Type: Spontaneous
  Country: US (occurrence: US)
  Receive Date: 20231203
  Receipt Date: 20231203
  Transmission Date: 20240110
  Serious: No
  Sender: FDA-Public Use
  Company Number: US-SANOFI-01856586

PATIENT
  Sex: Male

DRUGS (1)
  1. LANTUS [Suspect]
     Active Substance: INSULIN GLARGINE
     Dosage: 50 UNITS IN MORNING AND 28 UNITS IN EVENING, Q12H

REACTIONS (2)
  - Inappropriate schedule of product administration [Unknown]
  - Accidental exposure to product [Unknown]
